FAERS Safety Report 24248190 (Version 2)
Quarter: 2024Q3

REPORT INFORMATION
  Report Type: Spontaneous
  Country: DE (occurrence: DE)
  Receive Date: 20240826
  Receipt Date: 20240828
  Transmission Date: 20241017
  Serious: Yes (Other)
  Sender: TORRENT
  Company Number: DE-TORRENT-00027202

PATIENT
  Age: 79 Year
  Sex: Female
  Weight: 57 kg

DRUGS (3)
  1. DULOXETINE [Suspect]
     Active Substance: DULOXETINE
     Indication: Polyneuropathy
     Dosage: CURRENT DAILY DOSAGE: 0-0-1
     Route: 065
  2. AMLODIPINE [Concomitant]
     Active Substance: AMLODIPINE BESYLATE
     Indication: Blood pressure measurement
     Dosage: 0.5 - 0.5 - 0,SINCE 2016
     Route: 065
     Dates: start: 2016
  3. CANDESARTAN [Concomitant]
     Active Substance: CANDESARTAN
     Indication: Blood pressure measurement
     Dosage: 16 MG, 1 - 0 - 0 SINCE 2001
     Route: 065
     Dates: start: 2001

REACTIONS (2)
  - Neovascular age-related macular degeneration [Unknown]
  - Condition aggravated [Unknown]
